FAERS Safety Report 20853714 (Version 1)
Quarter: 2022Q2

REPORT INFORMATION
  Report Type: Spontaneous
  Country: US (occurrence: None)
  Receive Date: 20220519
  Receipt Date: 20220519
  Transmission Date: 20220721
  Serious: No
  Sender: FDA-Public Use
  Company Number: None

PATIENT
  Age: 74 Year
  Sex: Female
  Weight: 68.86 kg

DRUGS (14)
  1. CYCLOPHOSPHAMIDE [Suspect]
     Active Substance: CYCLOPHOSPHAMIDE
     Indication: Ovarian cancer
     Dosage: FREQUENCY : DAILY;?
     Route: 048
     Dates: start: 20220428
  2. ACETAMINOPHEN [Concomitant]
     Active Substance: ACETAMINOPHEN
  3. ALENDRONATE [Concomitant]
     Active Substance: ALENDRONATE SODIUM
  4. CALCIUM\CHOLECALCIFEROL [Concomitant]
     Active Substance: CALCIUM\CHOLECALCIFEROL
  5. CRANBERRY [Concomitant]
     Active Substance: CRANBERRY
  6. DIPHENHYDRAMINE [Concomitant]
     Active Substance: DIPHENHYDRAMINE
  7. ELIQUIS [Concomitant]
     Active Substance: APIXABAN
  8. GABAPENTIN [Concomitant]
     Active Substance: GABAPENTIN
  9. HYDROCHLOROTHIAZIDE [Concomitant]
     Active Substance: HYDROCHLOROTHIAZIDE
  10. DIPHENHYDRAMINE HYDROCHLORIDE\LIDOCAINE HYDROCHLORIDE\NYSTATIN [Concomitant]
     Active Substance: DIPHENHYDRAMINE HYDROCHLORIDE\LIDOCAINE HYDROCHLORIDE\NYSTATIN
  11. MIRALAX [Concomitant]
     Active Substance: POLYETHYLENE GLYCOL 3350
  12. NIACINAMIDE [Concomitant]
     Active Substance: NIACINAMIDE
  13. PROCHLORPERAZINE [Concomitant]
     Active Substance: PROCHLORPERAZINE
  14. TIZANIDINE [Concomitant]
     Active Substance: TIZANIDINE

REACTIONS (1)
  - Disease progression [None]
